FAERS Safety Report 9693149 (Version 4)
Quarter: 2014Q1

REPORT INFORMATION
  Report Type: Spontaneous
  Country: JP (occurrence: None)
  Receive Date: 20131114
  Receipt Date: 20140228
  Transmission Date: 20141002
  Serious: Yes (Hospitalization)
  Sender: FDA-Public Use
  Company Number: ABR_01250_2013

PATIENT
  Age: 63 Year
  Sex: Male

DRUGS (1)
  1. GLIADEL [Suspect]
     Indication: MALIGNANT GLIOMA
     Dosage: 61.6 MG, 1X, INTRACEREBRAL
     Dates: start: 20130927, end: 20130927

REACTIONS (4)
  - Brain oedema [None]
  - Cognitive disorder [None]
  - General physical health deterioration [None]
  - Implant site oedema [None]
